FAERS Safety Report 8424415-X (Version None)
Quarter: 2012Q2

REPORT INFORMATION
  Report Type: 
  Country: None (occurrence: None)
  Receive Date: 20120608
  Receipt Date: 20111010
  Transmission Date: 20120825
  Serious: No
  Sender: FDA-Public Use
  Company Number: US-ASTRAZENECA-2011SE39251

PATIENT
  Age: 80 Year
  Sex: Female

DRUGS (2)
  1. PULMICORT [Suspect]
     Route: 055
     Dates: end: 20110101
  2. PULMICORT [Suspect]
     Route: 055
     Dates: start: 20110101

REACTIONS (4)
  - CHEST DISCOMFORT [None]
  - DYSPNOEA [None]
  - DRUG DOSE OMISSION [None]
  - OFF LABEL USE [None]
